FAERS Safety Report 8359675-7 (Version None)
Quarter: 2012Q2

REPORT INFORMATION
  Report Type: 
  Country: None (occurrence: None)
  Receive Date: 20120515
  Receipt Date: 20120514
  Transmission Date: 20120825
  Serious: Yes (Hospitalization)
  Sender: FDA-Public Use
  Company Number: DE-PFIZER INC-2012116381

PATIENT
  Age: 83 Year
  Sex: Female
  Weight: 75 kg

DRUGS (3)
  1. AGOMELATINE [Concomitant]
     Indication: DEPRESSION
     Dosage: 20 MG, 1X/DAY
     Route: 048
     Dates: start: 20110401, end: 20111001
  2. VENLAFAXINE HCL [Suspect]
     Indication: DEPRESSION
     Dosage: 0.75 MG, 1X/DAY
     Route: 048
     Dates: start: 20110901, end: 20111010
  3. CITALOPRAM [Concomitant]
     Indication: DEPRESSION
     Dosage: 40 MG, 1X/DAY
     Route: 048
     Dates: start: 20110701, end: 20110901

REACTIONS (1)
  - HEPATITIS CHOLESTATIC [None]
